FAERS Safety Report 5166911-7 (Version None)
Quarter: 2006Q4

REPORT INFORMATION
  Report Type: 
  Country: None (occurrence: None)
  Receive Date: 20061207
  Receipt Date: 20061124
  Transmission Date: 20070319
  Serious: Yes (Other)
  Sender: FDA-Public Use
  Company Number: PHBS2006SE18410

PATIENT
  Sex: Female

DRUGS (1)
  1. GLEEVEC [Suspect]
     Dates: start: 20051101

REACTIONS (2)
  - ASTHENIA [None]
  - CARDIAC VALVE DISEASE [None]
